FAERS Safety Report 23190126 (Version 1)
Quarter: 2023Q4

REPORT INFORMATION
  Report Type: Spontaneous
  Country: CN (occurrence: None)
  Receive Date: 20231116
  Receipt Date: 20231116
  Transmission Date: 20240110
  Serious: Yes (Other)
  Sender: FDA-Public Use
  Company Number: CN-ROCHE-3455989

PATIENT
  Age: 58 Year
  Sex: Female
  Weight: 68 kg

DRUGS (4)
  1. HERCEPTIN [Suspect]
     Active Substance: TRASTUZUMAB
     Indication: Breast cancer
     Route: 041
     Dates: start: 20230924, end: 20230924
  2. PERJETA [Suspect]
     Active Substance: PERTUZUMAB
     Indication: Breast cancer
     Route: 065
     Dates: start: 20230924, end: 20230924
  3. ERIBULIN [Suspect]
     Active Substance: ERIBULIN
     Indication: Breast cancer
     Dosage: D1, D8
     Route: 041
     Dates: start: 20230924, end: 20231001
  4. APATINIB [Suspect]
     Active Substance: APATINIB
     Indication: Breast cancer
     Route: 048
     Dates: start: 20230924, end: 20231004

REACTIONS (1)
  - Myelosuppression [Recovered/Resolved]

NARRATIVE: CASE EVENT DATE: 20231004
